FAERS Safety Report 5080837-9 (Version None)
Quarter: 2006Q3

REPORT INFORMATION
  Report Type: 
  Country: None (occurrence: None)
  Receive Date: 20060811
  Receipt Date: 20060727
  Transmission Date: 20061208
  Serious: Yes (Hospitalization, Other)
  Sender: FDA-Public Use
  Company Number: 2006092337

PATIENT
  Sex: Female
  Weight: 90.7194 kg

DRUGS (2)
  1. BENADRYL [Suspect]
     Dosage: ORAL
     Route: 048
  2. DIPHENHYDRAMINE HCL [Suspect]

REACTIONS (6)
  - CARDIAC DISORDER [None]
  - CONVULSION [None]
  - DRUG HYPERSENSITIVITY [None]
  - NECK PAIN [None]
  - NEOPLASM MALIGNANT [None]
  - POST PROCEDURAL COMPLICATION [None]
